FAERS Safety Report 5839231-2 (Version None)
Quarter: 2008Q3

REPORT INFORMATION
  Report Type: 
  Country: None (occurrence: None)
  Receive Date: 20080806
  Receipt Date: 20080721
  Transmission Date: 20090109
  Serious: Yes (Life-Threatening, Hospitalization)
  Sender: FDA-Public Use
  Company Number: 8035304

PATIENT
  Age: 51 Year
  Sex: Female

DRUGS (7)
  1. PREDNISOLONE [Suspect]
     Indication: STILL'S DISEASE ADULT ONSET
     Dosage: 5 MG /D PO
     Route: 048
  2. PREDNISOLONE [Suspect]
     Indication: STILL'S DISEASE ADULT ONSET
     Dosage: 0.5 G /D IV
     Route: 042
  3. PREDNISOLONE [Suspect]
     Indication: STILL'S DISEASE ADULT ONSET
     Dosage: 8 MG /D
  4. BETAMETHASONE [Suspect]
     Dosage: 5 MG /D
  5. INDOMETHACIN [Concomitant]
  6. METHOTREXATE [Concomitant]
  7. METHOTREXATE SODIUM [Concomitant]

REACTIONS (7)
  - CONDITION AGGRAVATED [None]
  - DISSEMINATED INTRAVASCULAR COAGULATION [None]
  - DRUG INEFFECTIVE [None]
  - HEPATIC FAILURE [None]
  - HEPATIC INFARCTION [None]
  - HEPATIC NECROSIS [None]
  - STILL'S DISEASE ADULT ONSET [None]
